FAERS Safety Report 7685756-7 (Version None)
Quarter: 2011Q3

REPORT INFORMATION
  Report Type: 
  Country: None (occurrence: None)
  Receive Date: 20110815
  Receipt Date: 20110815
  Transmission Date: 20111222
  Serious: Yes (Hospitalization)
  Sender: FDA-Public Use
  Company Number: None

PATIENT
  Age: 67 Year
  Sex: Male
  Weight: 63 kg

DRUGS (13)
  1. CARDIZEM CD [Concomitant]
  2. SENNA-GEN [Concomitant]
     Route: 048
  3. PROCTOCORT 1% [Concomitant]
     Route: 061
  4. MILK OF MAGNESIA TAB [Concomitant]
     Route: 048
  5. PROTONIX [Concomitant]
     Route: 048
  6. REFRESH 0.5% [Concomitant]
     Route: 031
  7. FERROUS SULFATE TAB [Concomitant]
     Route: 048
  8. PRADAXA [Suspect]
     Indication: ATRIAL FIBRILLATION
     Dosage: 150 MG
     Route: 048
  9. PROSCAR [Concomitant]
     Route: 048
  10. DILANTIN [Concomitant]
  11. TRAZODONE HCL [Concomitant]
     Route: 048
  12. DILANTIN [Concomitant]
     Route: 048
  13. ZOLOFT [Concomitant]
     Route: 048

REACTIONS (2)
  - PULMONARY EMBOLISM [None]
  - ATRIAL THROMBOSIS [None]
